FAERS Safety Report 9520052 (Version 4)
Quarter: 2014Q1

REPORT INFORMATION
  Report Type: Spontaneous
  Country: US (occurrence: US)
  Receive Date: 20130912
  Receipt Date: 20140225
  Transmission Date: 20141002
  Serious: Yes (Other)
  Sender: FDA-Public Use
  Company Number: US-PURDUE-USA-2013-0106234

PATIENT
  Age: 67 Year
  Sex: Female
  Weight: 79.82 kg

DRUGS (13)
  1. OXYCONTIN (NDA 22-272) [Suspect]
     Indication: BACK PAIN
     Dosage: 10 MG, TID
     Route: 048
     Dates: start: 2000
  2. OXYCONTIN (NDA 22-272) [Suspect]
     Indication: PAIN
  3. OXYCONTIN (NDA 22-272) [Suspect]
     Indication: PAIN
  4. OXYCONTIN (NDA 22-272) [Suspect]
     Indication: SPINAL COLUMN STENOSIS
  5. PERCOCET                           /00867901/ [Concomitant]
     Indication: BREAKTHROUGH PAIN
     Dosage: UNK
     Route: 048
  6. CELEBREX [Concomitant]
     Indication: INFLAMMATION
     Dosage: 200 MG, DAILY
     Route: 048
     Dates: start: 20130829
  7. PREVACID [Concomitant]
     Indication: ULCER
     Dosage: UNK, AM
     Route: 048
     Dates: start: 20130829
  8. TUMS                               /00193601/ [Concomitant]
     Indication: GASTROOESOPHAGEAL REFLUX DISEASE
     Dosage: UNK, AC
     Route: 048
     Dates: start: 20130829
  9. TYLENOL EXTRA STRENGTH [Concomitant]
     Indication: PRODUCT USED FOR UNKNOWN INDICATION
     Dosage: UNKNOWN
  10. LOSARTAN                           /01121602/ [Concomitant]
     Indication: BLOOD PRESSURE
     Dosage: UNK
  11. ACCOLATE [Concomitant]
     Indication: PRODUCT USED FOR UNKNOWN INDICATION
     Dosage: UNKNOWN
  12. TRAZODONE HCL [Concomitant]
     Indication: PRODUCT USED FOR UNKNOWN INDICATION
     Dosage: UNKNOWN
  13. CLARITIN-D [Concomitant]
     Indication: PRODUCT USED FOR UNKNOWN INDICATION
     Dosage: UNKNOWN

REACTIONS (5)
  - Cerebrospinal fluid leakage [Recovered/Resolved]
  - Headache [Recovered/Resolved]
  - Nausea [Recovered/Resolved]
  - Feeling abnormal [Recovered/Resolved]
  - Malaise [Recovered/Resolved]
